FAERS Safety Report 9536134 (Version 1)
Quarter: 2013Q2

REPORT INFORMATION
  Report Type: Spontaneous
  Country: US (occurrence: None)
  Receive Date: 20130507
  Receipt Date: 20130507
  Transmission Date: 20140414
  Serious: No
  Sender: FDA-Public Use
  Company Number: PHEH2012US023415

PATIENT
  Age: 54 Year
  Sex: Female
  Weight: 99.8 kg

DRUGS (1)
  1. AFINITOR (RAD) UNKNOWN [Suspect]
     Indication: RENAL CANCER
     Route: 048
     Dates: start: 20121123

REACTIONS (1)
  - Constipation [None]
